FAERS Safety Report 23634909 (Version 1)
Quarter: 2024Q1

REPORT INFORMATION
  Report Type: Spontaneous
  Country: US (occurrence: US)
  Receive Date: 20240315
  Receipt Date: 20240315
  Transmission Date: 20240409
  Serious: Yes (Other)
  Sender: FDA-Public Use
  Company Number: US-JNJFOC-20240326188

PATIENT

DRUGS (4)
  1. ERLEADA [Suspect]
     Active Substance: APALUTAMIDE
     Indication: Product used for unknown indication
     Route: 065
     Dates: start: 20220310
  2. LUPRON [Concomitant]
     Active Substance: LEUPROLIDE ACETATE
     Dates: start: 20180918
  3. DOCETAXEL [Concomitant]
     Active Substance: DOCETAXEL\DOCETAXEL ANHYDROUS
     Dosage: 3 CYCLES
     Dates: start: 202207
  4. PLUVICTO [Concomitant]
     Active Substance: LUTETIUM LU-177 VIPIVOTIDE TETRAXETAN
     Dosage: RECEIVED 10 DOSES
     Dates: start: 202211

REACTIONS (4)
  - Leukopenia [Unknown]
  - Renal failure [Unknown]
  - Anaemia [Unknown]
  - Bone pain [Unknown]
